FAERS Safety Report 9154254 (Version 1)
Quarter: 2013Q1

REPORT INFORMATION
  Report Type: Spontaneous
  Country: US (occurrence: None)
  Receive Date: 20130308
  Receipt Date: 20130308
  Transmission Date: 20140127
  Serious: Yes (Life-Threatening, Hospitalization)
  Sender: FDA-Public Use
  Company Number: None

PATIENT
  Age: 60 Year
  Sex: Male
  Weight: 106.6 kg

DRUGS (1)
  1. VENLAFAXINE HCL [Suspect]
     Route: 048
     Dates: start: 201211, end: 201302

REACTIONS (3)
  - Delirium [None]
  - Abnormal dreams [None]
  - Hallucination [None]
